FAERS Safety Report 7724348-8 (Version None)
Quarter: 2011Q3

REPORT INFORMATION
  Report Type: 
  Country: None (occurrence: None)
  Receive Date: 20110901
  Receipt Date: 20110824
  Transmission Date: 20111222
  Serious: Yes (Other)
  Sender: FDA-Public Use
  Company Number: US-JNJFOC-20110709489

PATIENT
  Sex: Female
  Weight: 81.19 kg

DRUGS (6)
  1. CALAN [Concomitant]
     Indication: HYPERTENSION
     Route: 048
     Dates: start: 19940101
  2. LASIX [Concomitant]
     Indication: FLUID RETENTION
  3. REMICADE [Suspect]
     Indication: PSORIATIC ARTHROPATHY
     Route: 042
     Dates: start: 20110201, end: 20110501
  4. SYNTHROID [Concomitant]
     Indication: HYPOTHYROIDISM
     Route: 048
     Dates: start: 19990101
  5. PREMPRO [Concomitant]
     Indication: RESTLESS LEGS SYNDROME
     Route: 048
  6. FOLIC ACID [Concomitant]
     Indication: OSTEOPOROSIS
     Route: 048

REACTIONS (13)
  - PAIN [None]
  - COCCYDYNIA [None]
  - CHILLS [None]
  - DYSPNOEA [None]
  - WEIGHT DECREASED [None]
  - ABDOMINAL DISCOMFORT [None]
  - MUSCULOSKELETAL PAIN [None]
  - RESTLESS LEGS SYNDROME [None]
  - PYREXIA [None]
  - FIBROMYALGIA [None]
  - VENOUS INSUFFICIENCY [None]
  - URINARY TRACT INFECTION [None]
  - PAIN IN EXTREMITY [None]
